FAERS Safety Report 6926016-9 (Version None)
Quarter: 2010Q3

REPORT INFORMATION
  Report Type: 
  Country: None (occurrence: None)
  Receive Date: 20100816
  Receipt Date: 20100804
  Transmission Date: 20110219
  Serious: Yes (Other)
  Sender: FDA-Public Use
  Company Number: JP-PFIZER INC-2010091351

PATIENT
  Age: 7 Month
  Sex: Male
  Weight: 11 kg

DRUGS (1)
  1. ZITHROMAC [Suspect]
     Indication: RESPIRATORY TRACT INFECTION
     Dosage: UNK
     Route: 048
     Dates: start: 20100720

REACTIONS (2)
  - ANAPHYLACTIC SHOCK [None]
  - RASH [None]
